FAERS Safety Report 8331244-4 (Version None)
Quarter: 2012Q2

REPORT INFORMATION
  Report Type: 
  Country: None (occurrence: None)
  Receive Date: 20120502
  Receipt Date: 20120413
  Transmission Date: 20120825
  Serious: No
  Sender: FDA-Public Use
  Company Number: US-AMGEN-USASP2010008747

PATIENT
  Age: 62 Year
  Sex: Female
  Weight: 58.957 kg

DRUGS (2)
  1. ENBREL [Suspect]
     Indication: PSORIATIC ARTHROPATHY
     Dosage: 50 MG, QWK
     Route: 058
     Dates: start: 20091101, end: 20120223
  2. REMICADE [Concomitant]
     Route: 042

REACTIONS (4)
  - CONTUSION [None]
  - THERAPEUTIC RESPONSE DECREASED [None]
  - INJECTION SITE SWELLING [None]
  - INJECTION SITE ERYTHEMA [None]
